FAERS Safety Report 6961426-5 (Version None)
Quarter: 2010Q3

REPORT INFORMATION
  Report Type: 
  Country: None (occurrence: None)
  Receive Date: 20100901
  Receipt Date: 20100830
  Transmission Date: 20110219
  Serious: Yes (Life-Threatening, Hospitalization, Other)
  Sender: FDA-Public Use
  Company Number: PHHO2010BR08710

PATIENT
  Sex: Female
  Weight: 73 kg

DRUGS (1)
  1. TASIGNA [Suspect]
     Indication: GASTROINTESTINAL STROMAL TUMOUR
     Dosage: 800 MG, QD
     Route: 048
     Dates: start: 20100428, end: 20100608

REACTIONS (3)
  - DERMATITIS BULLOUS [None]
  - ERYSIPELAS [None]
  - POST PROCEDURAL COMPLICATION [None]
